FAERS Safety Report 9200254 (Version 1)
Quarter: 2013Q1

REPORT INFORMATION
  Report Type: Spontaneous
  Country: FR (occurrence: FR)
  Receive Date: 20130329
  Receipt Date: 20130329
  Transmission Date: 20140127
  Serious: Yes (Other)
  Sender: FDA-Public Use
  Company Number: FR-US-EMD SERONO, INC.-7200471

PATIENT
  Sex: Female

DRUGS (4)
  1. SAIZEN [Suspect]
     Indication: PRODUCT USED FOR UNKNOWN INDICATION
     Dosage: 0,2 MG DAILY THEN GRADUAL INCREASE OF THE DOSE UP TO 0.45 MG DAILY
     Route: 058
     Dates: start: 200402, end: 201104
  2. LEVOTHYROX [Concomitant]
     Indication: HYPOTHYROIDISM
     Dates: start: 1994
  3. HYDROCORTISONE [Concomitant]
     Indication: PRODUCT USED FOR UNKNOWN INDICATION
  4. MINIRIN [Concomitant]
     Indication: PRODUCT USED FOR UNKNOWN INDICATION

REACTIONS (2)
  - Suicide attempt [Recovered/Resolved]
  - Thyroid cancer [Unknown]
